FAERS Safety Report 8213489-7 (Version None)
Quarter: 2012Q1

REPORT INFORMATION
  Report Type: 
  Country: None (occurrence: None)
  Receive Date: 20120315
  Receipt Date: 20120307
  Transmission Date: 20120608
  Serious: Yes (Death)
  Sender: FDA-Public Use
  Company Number: FR-MERCK-1203USA01290

PATIENT
  Age: 69 Year
  Sex: Female

DRUGS (4)
  1. TRIVASTAL [Suspect]
     Route: 048
     Dates: start: 20050101, end: 20111013
  2. SINEMET CR [Suspect]
     Route: 048
     Dates: start: 20080903
  3. COMTAN [Suspect]
     Route: 048
     Dates: start: 20101026
  4. SINEMET [Suspect]
     Route: 048
     Dates: start: 20090101

REACTIONS (2)
  - DRUG WITHDRAWAL SYNDROME [None]
  - COMPLETED SUICIDE [None]
